FAERS Safety Report 6372079-1 (Version None)
Quarter: 2009Q3

REPORT INFORMATION
  Report Type: 
  Country: None (occurrence: None)
  Receive Date: 20090918
  Receipt Date: 20090908
  Transmission Date: 20100115
  Serious: Yes (Other)
  Sender: FDA-Public Use
  Company Number: ENT 2009-0157

PATIENT
  Age: 77 Year
  Sex: Female

DRUGS (9)
  1. COMTAN [Suspect]
     Indication: DRUG EFFECT DECREASED
     Dosage: 100 MG, TID
     Route: 048
     Dates: start: 20090401, end: 20090401
  2. DROXIDOPA [Concomitant]
  3. RENIVEZE [Concomitant]
  4. DEZOLAM [Concomitant]
  5. FAMOTIDINE [Concomitant]
  6. RONFLEMAN [Concomitant]
  7. MENESIT [Concomitant]
  8. NAUZELIN [Concomitant]
  9. SYMMETREL [Concomitant]

REACTIONS (7)
  - ALANINE AMINOTRANSFERASE INCREASED [None]
  - ASPARTATE AMINOTRANSFERASE INCREASED [None]
  - BLOOD ALKALINE PHOSPHATASE INCREASED [None]
  - BLOOD LACTATE DEHYDROGENASE INCREASED [None]
  - GAMMA-GLUTAMYLTRANSFERASE INCREASED [None]
  - HENOCH-SCHONLEIN PURPURA [None]
  - HEPATIC FUNCTION ABNORMAL [None]
